FAERS Safety Report 25207555 (Version 2)
Quarter: 2025Q2

REPORT INFORMATION
  Report Type: Spontaneous
  Country: CN (occurrence: CN)
  Receive Date: 20250417
  Receipt Date: 20250428
  Transmission Date: 20250717
  Serious: Yes (Life-Threatening)
  Sender: BAYER HEALTHCARE PHARMACEUTICALS INC.
  Company Number: CN-BAYER-2025A050795

PATIENT
  Age: 62 Year
  Sex: Male
  Weight: 53 kg

DRUGS (4)
  1. STIVARGA [Suspect]
     Active Substance: REGORAFENIB MONOHYDRATE
     Indication: Hepatocellular carcinoma
     Dosage: 160 MG, QD, FROM DAY 1 TO DAY 28
     Route: 048
     Dates: start: 20230512, end: 20230530
  2. STIVARGA [Suspect]
     Active Substance: REGORAFENIB MONOHYDRATE
     Indication: Metastases to lung
     Route: 048
     Dates: start: 20230725, end: 2023
  3. TISLELIZUMAB [Suspect]
     Active Substance: TISLELIZUMAB
     Indication: Hepatocellular carcinoma
     Dosage: 200 MG, AT DAY 1
     Dates: start: 20230512, end: 20230530
  4. TISLELIZUMAB [Suspect]
     Active Substance: TISLELIZUMAB
     Indication: Metastases to lung

REACTIONS (1)
  - Toxic epidermal necrolysis [Recovered/Resolved]

NARRATIVE: CASE EVENT DATE: 20230526
